FAERS Safety Report 25904123 (Version 1)
Quarter: 2025Q4

REPORT INFORMATION
  Report Type: Spontaneous
  Country: US (occurrence: US)
  Receive Date: 20251010
  Receipt Date: 20251010
  Transmission Date: 20260117
  Serious: No
  Sender: ROCHE
  Company Number: US-ROCHE-10000405227

PATIENT
  Sex: Female

DRUGS (7)
  1. XOLAIR [Suspect]
     Active Substance: OMALIZUMAB
     Indication: Asthma
     Route: 058
  2. ASPIRIN TBE [Concomitant]
  3. PAROXETlNE H [Concomitant]
  4. REPATHA SURE SOA [Concomitant]
     Dosage: 140 MG/ML
  5. TRELEGY ELLI AEP [Concomitant]
     Dosage: 100-62.5
  6. VITAMIN B12 [Concomitant]
     Active Substance: CYANOCOBALAMIN
  7. VITAMIN D [Concomitant]
     Active Substance: VITAMIN D NOS
     Dosage: 10 MG/ML, LIQUID

REACTIONS (1)
  - Anxiety [Not Recovered/Not Resolved]
